FAERS Safety Report 8021021-6 (Version None)
Quarter: 2012Q1

REPORT INFORMATION
  Report Type: 
  Country: None (occurrence: None)
  Receive Date: 20120104
  Receipt Date: 20111227
  Transmission Date: 20120608
  Serious: Yes (Hospitalization, Other)
  Sender: FDA-Public Use
  Company Number: US-BAYER-2011-073191

PATIENT
  Age: 33 Year
  Sex: Female

DRUGS (14)
  1. YASMIN [Suspect]
  2. DROSPIRENONE AND ETHINYL ESTRADIOL [Suspect]
     Indication: CONTRACEPTION
     Dosage: UNK
     Dates: start: 20070101, end: 20090101
  3. CEFEPIME [Concomitant]
     Dosage: UNK
     Dates: start: 20090901
  4. YASMIN [Suspect]
     Indication: CONTRACEPTION
     Dosage: UNK
     Dates: start: 20070101, end: 20090101
  5. DROSPIRENONE AND ETHINYL ESTRADIOL [Suspect]
  6. VANCOMYCIN [Concomitant]
     Dosage: UNK
     Dates: start: 20090901
  7. DROSPIRENONE AND ETHINYL ESTRADIOL [Suspect]
     Indication: ACNE
  8. DROSPIRENONE AND ETHINYL ESTRADIOL [Suspect]
     Indication: PREMENSTRUAL SYNDROME
  9. YAZ [Suspect]
     Indication: CONTRACEPTION
     Dosage: UNK
     Dates: start: 20070101, end: 20090101
  10. YAZ [Suspect]
     Indication: ACNE
  11. YAZ [Suspect]
  12. YAZ [Suspect]
     Indication: PREMENSTRUAL SYNDROME
  13. YASMIN [Suspect]
     Indication: PREMENSTRUAL SYNDROME
  14. YASMIN [Suspect]
     Indication: ACNE

REACTIONS (8)
  - ABDOMINAL PAIN [None]
  - BACK PAIN [None]
  - CHOLECYSTITIS CHRONIC [None]
  - HEPATITIS C [None]
  - SEPSIS [None]
  - HEADACHE [None]
  - PYREXIA [None]
  - VOMITING [None]
